FAERS Safety Report 9759983 (Version 1)
Quarter: 2013Q4

REPORT INFORMATION
  Report Type: Spontaneous
  Country: US (occurrence: US)
  Receive Date: 20131216
  Receipt Date: 20131216
  Transmission Date: 20140711
  Serious: Yes (Hospitalization)
  Sender: FDA-Public Use
  Company Number: US-BAYER-2013-153013

PATIENT
  Age: 43 Year
  Sex: Female

DRUGS (11)
  1. YAZ [Suspect]
  2. DILAUDID [Concomitant]
     Indication: PAIN
     Dosage: 1 TAB AS NEEDED
     Route: 048
  3. ZOFRAN [Concomitant]
     Indication: NAUSEA
     Dosage: ONE, TWICE A DAY AS NEEDED
     Route: 048
  4. ZOFRAN [Concomitant]
     Indication: NAUSEA
     Dosage: 4 MG, INTRAVENOUS PUSH AS NEEDED
  5. FAMOTIDINE [Concomitant]
     Dosage: 20 MG, BID
  6. ACETAMINOPHEN W/OXYCODONE [Concomitant]
  7. PERCOCET [Concomitant]
  8. TYLOX [Concomitant]
  9. ROXICET [Concomitant]
  10. DEXAMETHASONE [Concomitant]
     Dosage: UNK
     Route: 048
  11. DEXAMETHASONE [Concomitant]
     Dosage: 4 MG, EVERY 8 HOURS
     Route: 042

REACTIONS (1)
  - Intracranial venous sinus thrombosis [Recovered/Resolved]
